FAERS Safety Report 5195815-9 (Version None)
Quarter: 2007Q1

REPORT INFORMATION
  Report Type: 
  Country: None (occurrence: None)
  Receive Date: 20070102
  Receipt Date: 20061221
  Transmission Date: 20070707
  Serious: Yes (Other)
  Sender: FDA-Public Use
  Company Number: FRWYE928121DEC06

PATIENT
  Age: 65 Year
  Sex: Female

DRUGS (3)
  1. ENBREL [Suspect]
     Indication: RHEUMATOID ARTHRITIS
     Dosage: 50 MG TOTAL WEEKLY
     Route: 058
     Dates: end: 20060501
  2. ENBREL [Suspect]
     Route: 058
     Dates: start: 20060501, end: 20061201
  3. ENBREL [Suspect]
     Route: 058
     Dates: start: 20061201

REACTIONS (2)
  - ANGIOLIPOMA [None]
  - PLEURAL EFFUSION [None]
